FAERS Safety Report 5917675-8 (Version None)
Quarter: 2008Q4

REPORT INFORMATION
  Report Type: 
  Country: None (occurrence: None)
  Receive Date: 20081014
  Receipt Date: 20080909
  Transmission Date: 20090506
  Serious: No
  Sender: FDA-Public Use
  Company Number: US-BAYER-200833198NA

PATIENT
  Age: 61 Year
  Sex: Male

DRUGS (14)
  1. LEVITRA [Suspect]
     Indication: ERECTILE DYSFUNCTION
     Dosage: AS USED: 20 MG  UNIT DOSE: 20 MG
     Route: 048
     Dates: start: 20050101, end: 20080907
  2. GABAPENTIN [Concomitant]
     Route: 048
  3. POTASSIUM CHLORIDE [Concomitant]
     Dosage: UNIT DOSE: 10 MG
     Route: 048
  4. TOPIRAMATE [Concomitant]
     Dosage: UNIT DOSE: 100 MG
     Route: 048
  5. LISINOPRIL [Concomitant]
     Dosage: UNIT DOSE: 40 MG
     Route: 048
  6. ATENOLOL [Concomitant]
     Dosage: UNIT DOSE: 25 MG
     Route: 048
  7. OMEPRAZOLE [Concomitant]
  8. SIMVASTATIN [Concomitant]
     Route: 048
  9. BUPROPION HCL [Concomitant]
     Dosage: UNIT DOSE: 150 MG
     Route: 048
  10. QUETIAPINE FUMARATE [Concomitant]
     Route: 048
  11. FUROSEMIDE [Concomitant]
     Route: 048
  12. AMLODIPINE BESYLATE [Concomitant]
     Route: 048
  13. ASPIRIN [Concomitant]
     Route: 048
  14. KLONOPIN [Concomitant]
     Route: 048

REACTIONS (3)
  - ERECTILE DYSFUNCTION [None]
  - ERYTHEMA [None]
  - NASAL CONGESTION [None]
